FAERS Safety Report 7893329-6 (Version None)
Quarter: 2011Q4

REPORT INFORMATION
  Report Type: 
  Country: None (occurrence: None)
  Receive Date: 20111104
  Receipt Date: 20111028
  Transmission Date: 20120403
  Serious: Yes (Death)
  Sender: FDA-Public Use
  Company Number: FR-AMGEN-FRASP2011053399

PATIENT
  Age: 97 Year
  Sex: Male

DRUGS (9)
  1. AMLODIPINE BESYLATE [Concomitant]
  2. ALFUZOSIN HCL [Concomitant]
     Dosage: UNK UNK, QD
  3. OXAZEPAM [Concomitant]
     Dosage: UNK UNK, QD
  4. ARANESP [Suspect]
     Indication: ANAEMIA
     Dosage: 40 MUG, Q2WK
     Route: 058
  5. LASIX [Concomitant]
     Dosage: UNK UNK, QD
  6. AUGMENTIN '125' [Concomitant]
     Dosage: 1 G, BID
  7. IMOVANE [Concomitant]
     Dosage: UNK UNK, QD
  8. CALCIUM [Concomitant]
  9. IRON [Concomitant]

REACTIONS (3)
  - NASOPHARYNGITIS [None]
  - DEATH [None]
  - PYREXIA [None]
